FAERS Safety Report 7224259-0 (Version None)
Quarter: 2011Q1

REPORT INFORMATION
  Report Type: 
  Country: None (occurrence: None)
  Receive Date: 20110104
  Receipt Date: 20101220
  Transmission Date: 20110831
  Serious: Yes (Life-Threatening, Hospitalization)
  Sender: FDA-Public Use
  Company Number: 2010P1003482

PATIENT
  Age: 61 Year
  Sex: Female
  Weight: 54.4316 kg

DRUGS (4)
  1. FENTANYL-100 [Suspect]
     Indication: PAIN
     Dosage: 100 MCG/HR; Q72H; TDER
     Route: 062
     Dates: start: 20090101, end: 20100906
  2. 15 DIFFERENT UNSPECIFIED MEDICATIONS [Concomitant]
  3. FENTANYL-25 [Suspect]
     Indication: PAIN
     Dosage: 25 MCG/HR; Q72H; TDER
     Route: 062
     Dates: start: 20101130, end: 20101212
  4. FENTANYL-50 [Suspect]
     Indication: PAIN
     Dosage: 50 MCG/HR; Q72H; TDER
     Route: 062
     Dates: start: 20101213

REACTIONS (4)
  - DRUG INEFFECTIVE [None]
  - APPLICATION SITE PRURITUS [None]
  - RESPIRATORY ARREST [None]
  - GRAND MAL CONVULSION [None]
